FAERS Safety Report 22793270 (Version 2)
Quarter: 2023Q4

REPORT INFORMATION
  Report Type: Spontaneous
  Country: US (occurrence: US)
  Receive Date: 20230807
  Receipt Date: 20231004
  Transmission Date: 20240110
  Serious: No
  Sender: FDA-Public Use
  Company Number: US-JNJFOC-20230814537

PATIENT
  Age: 47 Year
  Sex: Male

DRUGS (33)
  1. INVEGA SUSTENNA [Suspect]
     Active Substance: PALIPERIDONE PALMITATE
     Indication: Schizophrenia
     Route: 030
     Dates: start: 20140313
  2. INVEGA SUSTENNA [Suspect]
     Active Substance: PALIPERIDONE PALMITATE
     Indication: Schizoaffective disorder
     Dosage: 234 MG/1.5 ML SYRINGE
     Route: 030
     Dates: start: 20221006
  3. INVEGA SUSTENNA [Suspect]
     Active Substance: PALIPERIDONE PALMITATE
  4. ACETAMINOPHEN [Concomitant]
     Active Substance: ACETAMINOPHEN
     Dosage: TAKE 2 TABLET BY MOUTH EVERY SIX HOURS AS NEEDED
     Route: 048
  5. MIRALAX [Concomitant]
     Active Substance: POLYETHYLENE GLYCOL 3350
     Dosage: TAKE 17 GRAM BY MOUTH TWICE A DAY ?1020 GRAM X 1,
     Route: 048
     Dates: start: 20220803
  6. GUAIFENESIN [Concomitant]
     Active Substance: GUAIFENESIN
     Indication: Cough
     Dosage: #30 TABLET X 2,
     Route: 048
     Dates: start: 20221018
  7. GUAIFENESIN [Concomitant]
     Active Substance: GUAIFENESIN
     Indication: Nasal congestion
  8. METFORMIN [Concomitant]
     Active Substance: METFORMIN HYDROCHLORIDE
     Indication: Product used for unknown indication
     Route: 048
     Dates: start: 20221024
  9. CHOLECALCIFEROL [Concomitant]
     Active Substance: CHOLECALCIFEROL
     Dosage: 30 EACH X 4
     Route: 048
     Dates: start: 20221024
  10. PANTOPRAZOLE [Concomitant]
     Active Substance: PANTOPRAZOLE
     Dosage: 30 EACH X 4
     Route: 048
     Dates: start: 20221024
  11. LISINOPRIL [Concomitant]
     Active Substance: LISINOPRIL
     Dosage: 3 0 EACH X 4
     Route: 048
     Dates: start: 20221024
  12. METAMUCIL [Concomitant]
     Active Substance: PLANTAGO SEED
     Dosage: 660 CAPSULE X 6
     Route: 048
     Dates: start: 20221102
  13. FENOFIBRATE [Concomitant]
     Active Substance: FENOFIBRATE
     Dosage: 660 CAPSULE X 6
     Route: 048
  14. FLUTICASONE FUROATE [Concomitant]
     Active Substance: FLUTICASONE FUROATE
     Dosage: INHALE 1 PUFF AS DIRECTED ONCE A DAY
     Route: 055
  15. COMBIVENT RESPIMAT [Concomitant]
     Active Substance: ALBUTEROL SULFATE\IPRATROPIUM BROMIDE
     Indication: Cough
     Dosage: 20-100 MCG?INHALE 1 PUFF BY MOUTH EVERY 4 TO 6 HOURS
     Route: 055
  16. COMBIVENT RESPIMAT [Concomitant]
     Active Substance: ALBUTEROL SULFATE\IPRATROPIUM BROMIDE
     Indication: Wheezing
  17. COMBIVENT RESPIMAT [Concomitant]
     Active Substance: ALBUTEROL SULFATE\IPRATROPIUM BROMIDE
     Indication: Chest discomfort
  18. BENZOCAINE [Concomitant]
     Active Substance: BENZOCAINE
     Route: 065
     Dates: start: 20230328
  19. NAPROXEN [Concomitant]
     Active Substance: NAPROXEN
     Route: 048
  20. QUETIAPINE [Concomitant]
     Active Substance: QUETIAPINE
     Dosage: TAKE 1 TABLET BY MOUTH AT BEDTIME?30 TABLET X 2
     Route: 048
  21. JANUVIA [Concomitant]
     Active Substance: SITAGLIPTIN PHOSPHATE
     Route: 048
     Dates: start: 20221024
  22. MENTHOL [Concomitant]
     Active Substance: MENTHOL
     Dosage: 4%
     Route: 065
  23. SODIUM CHLORIDE [Concomitant]
     Active Substance: SODIUM CHLORIDE
     Dosage: NASAL MOISTURIZING 0.65%?SPRAY 1 SPRAY INTO BOTH NOSTRILS EVERY SIX HOURS AS NEEDED
     Route: 045
  24. JARDIANCE [Concomitant]
     Active Substance: EMPAGLIFLOZIN
     Dosage: 30 TABLET X 3
     Route: 048
     Dates: start: 20230621
  25. OZEMPIC [Concomitant]
     Active Substance: SEMAGLUTIDE
     Dosage: 0.25 MG OR 0.5 MG (2 MG/3 ML
     Route: 058
     Dates: start: 20230621
  26. CYCLOBENZAPRINE [Concomitant]
     Active Substance: CYCLOBENZAPRINE
     Route: 048
     Dates: start: 20220829
  27. METOPROLOL TARTRATE [Concomitant]
     Active Substance: METOPROLOL TARTRATE
     Dosage: TAKE 1/2 TABLET (12.5MG) BY MOUTH TWICE DAILY.
     Route: 048
     Dates: start: 20230103
  28. VENTOLIN [Concomitant]
     Active Substance: ALBUTEROL SULFATE
     Indication: Dyspnoea
     Dosage: EVERY 4-6 HOURS AS NEEDED
     Route: 055
     Dates: start: 20230724
  29. VENTOLIN [Concomitant]
     Active Substance: ALBUTEROL SULFATE
     Indication: Wheezing
  30. DIAZEPAM [Concomitant]
     Active Substance: DIAZEPAM
     Route: 048
     Dates: start: 20230726
  31. AMLODIPINE [Concomitant]
     Active Substance: AMLODIPINE BESYLATE
     Route: 048
     Dates: start: 20230803
  32. AMOXICILLIN [Concomitant]
     Active Substance: AMOXICILLIN
     Route: 048
     Dates: start: 20230810
  33. CARBAMAZEPINE [Concomitant]
     Active Substance: CARBAMAZEPINE
     Dosage: 60 TABLET X 5
     Route: 048

REACTIONS (2)
  - Pain [Recovered/Resolved]
  - Off label use [Unknown]

NARRATIVE: CASE EVENT DATE: 20230616
